FAERS Safety Report 19138331 (Version 2)
Quarter: 2021Q2

REPORT INFORMATION
  Report Type: Spontaneous
  Country: US (occurrence: US)
  Receive Date: 20210415
  Receipt Date: 20210419
  Transmission Date: 20210717
  Serious: Yes (Life-Threatening, Hospitalization, Other)
  Sender: FDA-Public Use
  Company Number: US-SA-2021SA115789

PATIENT
  Age: 40 Year
  Sex: Female

DRUGS (2)
  1. DIPHENHYDRAMINE. [Suspect]
     Active Substance: DIPHENHYDRAMINE
     Dosage: OCCASSIONALLY
  2. LOPERAMIDE [Suspect]
     Active Substance: LOPERAMIDE
     Indication: DRUG ABUSE
     Dosage: 100 TABLETS OF LOPERAMIDE 2 MG DAILY

REACTIONS (12)
  - Cardiotoxicity [Recovering/Resolving]
  - Mental status changes [Recovering/Resolving]
  - Sinus tachycardia [Recovering/Resolving]
  - Bundle branch block left [Recovering/Resolving]
  - Ventricular tachycardia [Recovered/Resolved]
  - Intentional product misuse [Unknown]
  - Intentional overdose [Unknown]
  - Hyperthermia [Recovering/Resolving]
  - Cardiac arrest [Recovered/Resolved]
  - Torsade de pointes [Recovering/Resolving]
  - Tachycardia [Recovering/Resolving]
  - Pulseless electrical activity [Recovered/Resolved]
